FAERS Safety Report 12339880 (Version 1)
Quarter: 2016Q2

REPORT INFORMATION
  Report Type: Spontaneous
  Country: US (occurrence: US)
  Receive Date: 20160506
  Receipt Date: 20160506
  Transmission Date: 20160815
  Serious: Yes (Other)
  Sender: FDA-Public Use
  Company Number: US-BEH-2016061988

PATIENT
  Sex: Female
  Weight: 73 kg

DRUGS (26)
  1. CITALOPRAM [Concomitant]
     Active Substance: CITALOPRAM HYDROBROMIDE
  2. FLUNISOLIDE. [Concomitant]
     Active Substance: FLUNISOLIDE
  3. EPIPEN [Concomitant]
     Active Substance: EPINEPHRINE
  4. XANAX [Concomitant]
     Active Substance: ALPRAZOLAM
  5. HIZENTRA [Suspect]
     Active Substance: HUMAN IMMUNOGLOBULIN G
     Indication: IMMUNODEFICIENCY COMMON VARIABLE
  6. HIZENTRA [Suspect]
     Active Substance: HUMAN IMMUNOGLOBULIN G
  7. ACETAMINOPHEN. [Concomitant]
     Active Substance: ACETAMINOPHEN
  8. OMEPRAZOLE. [Concomitant]
     Active Substance: OMEPRAZOLE
  9. PREDNISONE. [Concomitant]
     Active Substance: PREDNISONE
  10. DULERA [Concomitant]
     Active Substance: FORMOTEROL FUMARATE DIHYDRATE\MOMETASONE FUROATE
  11. ALBUTEROL. [Concomitant]
     Active Substance: ALBUTEROL
  12. HIZENTRA [Suspect]
     Active Substance: HUMAN IMMUNOGLOBULIN G
     Route: 058
     Dates: start: 20110304
  13. DIPHENHYDRAMINE. [Concomitant]
     Active Substance: DIPHENHYDRAMINE
  14. DULERA [Concomitant]
     Active Substance: FORMOTEROL FUMARATE DIHYDRATE\MOMETASONE FUROATE
  15. OXYGEN. [Concomitant]
     Active Substance: OXYGEN
  16. SINGULAIR [Concomitant]
     Active Substance: MONTELUKAST SODIUM
  17. IPRATROPIUM [Concomitant]
     Active Substance: IPRATROPIUM
  18. LIDOCAINE. [Concomitant]
     Active Substance: LIDOCAINE
  19. GEMFIBROZIL. [Concomitant]
     Active Substance: GEMFIBROZIL
  20. GLIPIZIDE. [Concomitant]
     Active Substance: GLIPIZIDE
  21. MULTIVITAMINS [Concomitant]
     Active Substance: VITAMINS
  22. PRILOCAINE [Concomitant]
     Active Substance: PRILOCAINE
  23. SIMVASTATIN. [Concomitant]
     Active Substance: SIMVASTATIN
  24. CINNAMON. [Concomitant]
     Active Substance: CINNAMON
  25. MIRALAX [Concomitant]
     Active Substance: POLYETHYLENE GLYCOL 3350
  26. XOLAIR [Concomitant]
     Active Substance: OMALIZUMAB

REACTIONS (1)
  - Lung infection [Unknown]
